FAERS Safety Report 11654988 (Version 2)
Quarter: 2015Q4

REPORT INFORMATION
  Report Type: Spontaneous
  Country: IT (occurrence: IT)
  Receive Date: 20151023
  Receipt Date: 20151221
  Transmission Date: 20160304
  Serious: Yes (Hospitalization, Other)
  Sender: FDA-Public Use
  Company Number: IT-WATSON-2015-21871

PATIENT
  Age: 58 Year
  Sex: Female

DRUGS (6)
  1. METHYLPREDNISOLONE (UNKNOWN) [Suspect]
     Active Substance: METHYLPREDNISOLONE
     Indication: ENDOCRINE OPHTHALMOPATHY
     Dosage: 500 MG, 1/WEEK
     Route: 042
  2. CALCIUM [Concomitant]
     Active Substance: CALCIUM
     Indication: OSTEOPOROSIS PROPHYLAXIS
     Dosage: UNK
     Route: 065
  3. VITAMIN D                          /00107901/ [Concomitant]
     Active Substance: ERGOCALCIFEROL
     Indication: OSTEOPOROSIS PROPHYLAXIS
     Dosage: UNK
     Route: 065
  4. LYSINE ACETYLSALICYLIC [Concomitant]
     Active Substance: ASPIRIN LYSINE
     Indication: TRANSIENT ISCHAEMIC ATTACK
     Dosage: 160 MG, DAILY
     Route: 065
     Dates: start: 2009
  5. ROSUVASTATIN (UNKNOWN) [Interacting]
     Active Substance: ROSUVASTATIN
     Indication: TRANSIENT ISCHAEMIC ATTACK
     Dosage: 20 MG, DAILY
     Route: 065
     Dates: start: 2009
  6. LEVOTHYROXINE. [Concomitant]
     Active Substance: LEVOTHYROXINE
     Indication: HORMONE REPLACEMENT THERAPY
     Dosage: UNK
     Route: 065

REACTIONS (2)
  - Drug interaction [Recovering/Resolving]
  - Hepatitis toxic [Recovering/Resolving]

NARRATIVE: CASE EVENT DATE: 2011
